FAERS Safety Report 24314967 (Version 3)
Quarter: 2025Q1

REPORT INFORMATION
  Report Type: Report from Study
  Country: US (occurrence: US)
  Receive Date: 20240913
  Receipt Date: 20250130
  Transmission Date: 20250409
  Serious: Yes (Hospitalization)
  Sender: TAKEDA
  Company Number: US-TAKEDA-2024TUS076362

PATIENT
  Sex: Male

DRUGS (16)
  1. FRUQUINTINIB [Suspect]
     Active Substance: FRUQUINTINIB
     Indication: Colon cancer
  2. FRUQUINTINIB [Suspect]
     Active Substance: FRUQUINTINIB
  3. FRUQUINTINIB [Suspect]
     Active Substance: FRUQUINTINIB
  4. FRUQUINTINIB [Suspect]
     Active Substance: FRUQUINTINIB
     Dosage: 5 MILLIGRAM, QD
  5. TYLENOL [Concomitant]
     Active Substance: ACETAMINOPHEN
  6. INTEGRA F [Concomitant]
     Active Substance: ASCORBIC ACID\FERROUS ASPARTO GLYCINATE\FERROUS FUMARATE\FOLIC ACID\NIACIN
  7. MAALOX ANTACID [Concomitant]
     Active Substance: ALUMINUM HYDROXIDE\DIMETHICONE\MAGNESIUM HYDROXIDE
  8. METOPROLOL TARTRATE [Concomitant]
     Active Substance: METOPROLOL TARTRATE
  9. MORPHINE SULFATE [Concomitant]
     Active Substance: MORPHINE SULFATE
  10. NIVESTYM [Concomitant]
     Active Substance: FILGRASTIM-AAFI
  11. ZOFRAN [Concomitant]
     Active Substance: ONDANSETRON HYDROCHLORIDE
  12. OXYCODONE [Concomitant]
     Active Substance: OXYCODONE
  13. PALONOSETRON [Concomitant]
     Active Substance: PALONOSETRON
  14. PANTOPRAZOLE [Concomitant]
     Active Substance: PANTOPRAZOLE
  15. PROCHLORPERAZINE [Concomitant]
     Active Substance: PROCHLORPERAZINE
  16. RESTORIL [Concomitant]
     Active Substance: TEMAZEPAM

REACTIONS (16)
  - Vomiting [Unknown]
  - Headache [Unknown]
  - Hypertension [Unknown]
  - Constipation [Not Recovered/Not Resolved]
  - Chills [Unknown]
  - Joint swelling [Unknown]
  - Nausea [Unknown]
  - Fluid retention [Unknown]
  - Abdominal pain [Recovering/Resolving]
  - Blood creatinine increased [Unknown]
  - Pain in extremity [Recovering/Resolving]
  - Nasopharyngitis [Unknown]
  - Decreased appetite [Recovering/Resolving]
  - Dry mouth [Unknown]
  - Paraesthesia [Unknown]
  - Hypoaesthesia [Unknown]
